FAERS Safety Report 7885280-2 (Version None)
Quarter: 2011Q4

REPORT INFORMATION
  Report Type: 
  Country: None (occurrence: None)
  Receive Date: 20111102
  Receipt Date: 20111026
  Transmission Date: 20120403
  Serious: Yes (Hospitalization)
  Sender: FDA-Public Use
  Company Number: IL-SANOFI-AVENTIS-2011SA068475

PATIENT
  Age: 91 Year
  Sex: Female

DRUGS (11)
  1. NORMITEN [Concomitant]
  2. PAROXETINE HCL [Concomitant]
  3. BONDORMIN [Concomitant]
  4. PLAVIX [Suspect]
     Route: 048
     Dates: start: 20110912
  5. SIMVASTATIN [Concomitant]
  6. AMLODIPINE BESYLATE [Concomitant]
  7. FUSID [Concomitant]
  8. OMEPRADEX [Concomitant]
  9. LEVOTHYROXINE SODIUM [Concomitant]
  10. TAMOXIFEN CITRATE [Concomitant]
  11. TIMOLOL MALEATE [Concomitant]

REACTIONS (2)
  - FALL [None]
  - SUBDURAL HAEMATOMA [None]
